FAERS Safety Report 8302973-3 (Version None)
Quarter: 2012Q2

REPORT INFORMATION
  Report Type: 
  Country: None (occurrence: None)
  Receive Date: 20120420
  Receipt Date: 20120413
  Transmission Date: 20120825
  Serious: Yes (Death, Life-Threatening, Hospitalization)
  Sender: FDA-Public Use
  Company Number: PHHO2007HU15727

PATIENT
  Sex: Female
  Weight: 57.6 kg

DRUGS (4)
  1. MYCOPHENOLIC ACID [Suspect]
     Indication: LUPUS NEPHRITIS
     Dosage: 2160 MG, UNK
     Route: 048
     Dates: start: 20070529, end: 20070901
  2. CEPHALOSPORINES [Suspect]
  3. MYCOPHENOLIC ACID [Suspect]
     Dosage: 1440 MG, UNK
     Route: 048
     Dates: end: 20070906
  4. CEDAX [Suspect]
     Dosage: 400
     Route: 048
     Dates: start: 20070828, end: 20070831

REACTIONS (21)
  - METABOLIC ACIDOSIS [None]
  - OXYGEN SATURATION DECREASED [None]
  - PANCREATIC DISORDER [None]
  - PHARYNGITIS [None]
  - MULTI-ORGAN FAILURE [None]
  - PANCREATITIS ACUTE [None]
  - CYTOMEGALOVIRUS INFECTION [None]
  - SEPTIC SHOCK [None]
  - HEPATIC ENZYME INCREASED [None]
  - DIARRHOEA [None]
  - RENAL FAILURE ACUTE [None]
  - ANAEMIA [None]
  - EPSTEIN-BARR VIRUS INFECTION [None]
  - HEPATIC INFECTION [None]
  - ANURIA [None]
  - CONCOMITANT DISEASE PROGRESSION [None]
  - ABDOMINAL PAIN [None]
  - HYPOTENSION [None]
  - THROMBOCYTOPENIA [None]
  - PANCREATIC ENZYMES INCREASED [None]
  - TOXIC SKIN ERUPTION [None]
